FAERS Safety Report 21806369 (Version 5)
Quarter: 2023Q2

REPORT INFORMATION
  Report Type: Spontaneous
  Country: JP (occurrence: JP)
  Receive Date: 20230102
  Receipt Date: 20230427
  Transmission Date: 20230722
  Serious: Yes (Hospitalization, Other)
  Sender: FDA-Public Use
  Company Number: JP-TAKEDA-2022TUS102938

PATIENT
  Age: 53 Year
  Sex: Female
  Weight: 56.9 kg

DRUGS (82)
  1. LIALDA [Suspect]
     Active Substance: MESALAMINE
     Indication: Colitis ulcerative
     Dosage: UNK
     Route: 048
  2. LIALDA [Suspect]
     Active Substance: MESALAMINE
     Indication: Pulmonary arterial hypertension
     Dosage: 1200 MILLIGRAM, QD
     Route: 048
  3. TREPROSTINIL [Suspect]
     Active Substance: TREPROSTINIL
     Indication: Pulmonary arterial hypertension
     Dosage: 216 MICROGRAM, QD
     Route: 055
     Dates: start: 20190806, end: 201908
  4. TREPROSTINIL [Suspect]
     Active Substance: TREPROSTINIL
     Dosage: 72 MICROGRAM, QD
     Route: 055
     Dates: start: 20190806, end: 201908
  5. TREPROSTINIL [Suspect]
     Active Substance: TREPROSTINIL
     Dosage: 6 DOSAGE FORM, QD
     Route: 055
     Dates: start: 20190813, end: 20190813
  6. TREPROSTINIL [Suspect]
     Active Substance: TREPROSTINIL
     Dosage: 12 DOSAGE FORM, QD
     Route: 055
     Dates: start: 20190813, end: 20190813
  7. TREPROSTINIL [Suspect]
     Active Substance: TREPROSTINIL
     Dosage: 144 MICROGRAM, QD
     Route: 055
     Dates: start: 20190813, end: 2019
  8. TREPROSTINIL [Suspect]
     Active Substance: TREPROSTINIL
     Dosage: 24 DOSAGE FORM, QD
     Route: 055
     Dates: start: 20190814, end: 20190902
  9. TREPROSTINIL [Suspect]
     Active Substance: TREPROSTINIL
     Dosage: 12 DOSAGE FORM, QD
     Route: 055
     Dates: start: 20190903, end: 20190903
  10. TREPROSTINIL [Suspect]
     Active Substance: TREPROSTINIL
     Dosage: 18 DOSAGE FORM, QD
     Route: 055
     Dates: start: 20190903, end: 20190903
  11. TREPROSTINIL [Suspect]
     Active Substance: TREPROSTINIL
     Dosage: 216 DOSAGE FORM, QD
     Route: 055
     Dates: start: 20190903, end: 20221206
  12. TREPROSTINIL [Suspect]
     Active Substance: TREPROSTINIL
     Dosage: 36 DOSAGE FORM, QD
     Route: 055
     Dates: start: 20190904, end: 20200424
  13. TREPROSTINIL [Suspect]
     Active Substance: TREPROSTINIL
     Dosage: 27 DOSAGE FORM, QD
     Route: 055
     Dates: start: 20200425, end: 20200425
  14. TREPROSTINIL [Suspect]
     Active Substance: TREPROSTINIL
     Dosage: 36 DOSAGE FORM, QD
     Route: 055
     Dates: start: 20200426, end: 20200617
  15. TREPROSTINIL [Suspect]
     Active Substance: TREPROSTINIL
     Dosage: 27 DOSAGE FORM, QD
     Route: 055
     Dates: start: 20200618, end: 20200618
  16. TREPROSTINIL [Suspect]
     Active Substance: TREPROSTINIL
     Dosage: 36 DOSAGE FORM, QD
     Route: 055
     Dates: start: 20200619, end: 20200715
  17. TREPROSTINIL [Suspect]
     Active Substance: TREPROSTINIL
     Dosage: 27 DOSAGE FORM, QD
     Route: 055
     Dates: start: 20200716, end: 20200716
  18. TREPROSTINIL [Suspect]
     Active Substance: TREPROSTINIL
     Dosage: 36 DOSAGE FORM, QD
     Route: 055
     Dates: start: 20200717, end: 20200806
  19. TREPROSTINIL [Suspect]
     Active Substance: TREPROSTINIL
     Dosage: 27 DOSAGE FORM, QD
     Route: 055
     Dates: start: 20200807, end: 20200807
  20. TREPROSTINIL [Suspect]
     Active Substance: TREPROSTINIL
     Dosage: 36 DOSAGE FORM, QD
     Route: 055
     Dates: start: 20200808, end: 20200818
  21. TREPROSTINIL [Suspect]
     Active Substance: TREPROSTINIL
     Dosage: 18 DOSAGE FORM, QD
     Route: 055
     Dates: start: 20200819, end: 20200819
  22. TREPROSTINIL [Suspect]
     Active Substance: TREPROSTINIL
     Dosage: 36 DOSAGE FORM, QD
     Route: 055
     Dates: start: 20200820, end: 20200916
  23. TREPROSTINIL [Suspect]
     Active Substance: TREPROSTINIL
     Dosage: 27 DOSAGE FORM, QD
     Route: 055
     Dates: start: 20200917, end: 20200917
  24. TREPROSTINIL [Suspect]
     Active Substance: TREPROSTINIL
     Dosage: 36 DOSAGE FORM, QD
     Route: 055
     Dates: start: 20200918, end: 20200923
  25. TREPROSTINIL [Suspect]
     Active Substance: TREPROSTINIL
     Dosage: 27 DOSAGE FORM, QD
     Route: 055
     Dates: start: 20200924, end: 20200924
  26. TREPROSTINIL [Suspect]
     Active Substance: TREPROSTINIL
     Dosage: 36 DOSAGE FORM, QD
     Route: 055
     Dates: start: 20200925, end: 20201008
  27. TREPROSTINIL [Suspect]
     Active Substance: TREPROSTINIL
     Dosage: 27 DOSAGE FORM, QD
     Route: 055
     Dates: start: 20201009, end: 20201009
  28. TREPROSTINIL [Suspect]
     Active Substance: TREPROSTINIL
     Dosage: 36 DOSAGE FORM, QD
     Route: 055
     Dates: start: 20201010, end: 20201020
  29. TREPROSTINIL [Suspect]
     Active Substance: TREPROSTINIL
     Dosage: 18 DOSAGE FORM, QD
     Route: 055
     Dates: start: 20201021, end: 20201022
  30. TREPROSTINIL [Suspect]
     Active Substance: TREPROSTINIL
     Dosage: 36 DOSAGE FORM, QD
     Route: 055
     Dates: start: 20201023, end: 20201028
  31. TREPROSTINIL [Suspect]
     Active Substance: TREPROSTINIL
     Dosage: 27 DOSAGE FORM, QD
     Route: 055
     Dates: start: 20201029, end: 20201029
  32. TREPROSTINIL [Suspect]
     Active Substance: TREPROSTINIL
     Dosage: 36 DOSAGE FORM, QD
     Route: 055
     Dates: start: 20201030, end: 20201202
  33. TREPROSTINIL [Suspect]
     Active Substance: TREPROSTINIL
     Dosage: 27 DOSAGE FORM, QD
     Route: 055
     Dates: start: 20201203, end: 20201203
  34. TREPROSTINIL [Suspect]
     Active Substance: TREPROSTINIL
     Dosage: 36 DOSAGE FORM, QD
     Route: 055
     Dates: start: 20201204, end: 20201208
  35. TREPROSTINIL [Suspect]
     Active Substance: TREPROSTINIL
     Dosage: 27 DOSAGE FORM, QD
     Route: 055
     Dates: start: 20201209, end: 20201209
  36. TREPROSTINIL [Suspect]
     Active Substance: TREPROSTINIL
     Dosage: 36 DOSAGE FORM, QD
     Route: 055
     Dates: start: 20201210, end: 20201210
  37. TREPROSTINIL [Suspect]
     Active Substance: TREPROSTINIL
     Dosage: 27 DOSAGE FORM, QD
     Route: 055
     Dates: start: 20201211, end: 20201211
  38. TREPROSTINIL [Suspect]
     Active Substance: TREPROSTINIL
     Dosage: 36 DOSAGE FORM, QD
     Route: 055
     Dates: start: 20201212, end: 20210106
  39. TREPROSTINIL [Suspect]
     Active Substance: TREPROSTINIL
     Dosage: 27 DOSAGE FORM, QD
     Route: 055
     Dates: start: 20210107, end: 20210107
  40. TREPROSTINIL [Suspect]
     Active Substance: TREPROSTINIL
     Dosage: 36 DOSAGE FORM, QD
     Route: 055
     Dates: start: 20210108, end: 20210108
  41. TREPROSTINIL [Suspect]
     Active Substance: TREPROSTINIL
     Dosage: 27 DOSAGE FORM, QD
     Route: 055
     Dates: start: 20210119, end: 20210119
  42. TREPROSTINIL [Suspect]
     Active Substance: TREPROSTINIL
     Dosage: 36 DOSAGE FORM, QD
     Route: 055
     Dates: start: 20210120, end: 20210211
  43. TREPROSTINIL [Suspect]
     Active Substance: TREPROSTINIL
     Dosage: 27 DOSAGE FORM, QD
     Route: 055
     Dates: start: 20210212, end: 20210212
  44. TREPROSTINIL [Suspect]
     Active Substance: TREPROSTINIL
     Dosage: 36 DOSAGE FORM, QD
     Route: 055
     Dates: start: 20210213, end: 20210217
  45. TREPROSTINIL [Suspect]
     Active Substance: TREPROSTINIL
     Dosage: 27 DOSAGE FORM, QD
     Route: 055
     Dates: start: 20210218, end: 20210218
  46. TREPROSTINIL [Suspect]
     Active Substance: TREPROSTINIL
     Dosage: 36 DOSAGE FORM, QD
     Route: 055
     Dates: start: 20210219, end: 20210309
  47. TREPROSTINIL [Suspect]
     Active Substance: TREPROSTINIL
     Dosage: 27 DOSAGE FORM, QD
     Route: 055
     Dates: start: 20210310, end: 20210310
  48. TREPROSTINIL [Suspect]
     Active Substance: TREPROSTINIL
     Dosage: 36 DOSAGE FORM, QD
     Route: 055
     Dates: start: 20210311, end: 20210331
  49. TREPROSTINIL [Suspect]
     Active Substance: TREPROSTINIL
     Dosage: 27 DOSAGE FORM, QD
     Route: 055
     Dates: start: 20210401, end: 20210401
  50. TREPROSTINIL [Suspect]
     Active Substance: TREPROSTINIL
     Dosage: 36 DOSAGE FORM, QD
     Route: 055
     Dates: start: 20210402, end: 20210729
  51. TREPROSTINIL [Suspect]
     Active Substance: TREPROSTINIL
     Dosage: 18 DOSAGE FORM, QD
     Route: 055
     Dates: start: 20210730, end: 20210730
  52. TREPROSTINIL [Suspect]
     Active Substance: TREPROSTINIL
     Dosage: 36 DOSAGE FORM, QD
     Route: 055
     Dates: start: 20210731, end: 20220704
  53. MIYA-BM [Concomitant]
     Active Substance: CLOSTRIDIUM BUTYRICUM SPORES STRAIN M-55
     Indication: Colitis ulcerative
     Dosage: 1 DOSAGE FORM, Q8HR
     Route: 048
  54. MIYA-BM [Concomitant]
     Active Substance: CLOSTRIDIUM BUTYRICUM SPORES STRAIN M-55
     Dosage: 3 DOSAGE FORM, Q8HR
     Route: 048
  55. LANSOPRAZOLE [Concomitant]
     Active Substance: LANSOPRAZOLE
     Indication: Prophylaxis against gastrointestinal ulcer
     Dosage: 15 MILLIGRAM, QD
     Route: 048
  56. OPSUMIT [Concomitant]
     Active Substance: MACITENTAN
     Indication: Pulmonary arterial hypertension
     Dosage: 10 MILLIGRAM, QD
     Route: 048
  57. ADCIRCA [Concomitant]
     Active Substance: TADALAFIL
     Indication: Pulmonary arterial hypertension
     Dosage: 20 MILLIGRAM, Q12H
     Route: 048
  58. ADCIRCA [Concomitant]
     Active Substance: TADALAFIL
     Dosage: 40 MILLIGRAM, Q12H
     Route: 048
  59. AZOSEMIDE [Concomitant]
     Active Substance: AZOSEMIDE
     Indication: Pulmonary arterial hypertension
     Dosage: 15 MILLIGRAM, QD
     Route: 048
  60. FERROUS SULFATE [Concomitant]
     Active Substance: FERROUS SULFATE
     Indication: Iron deficiency anaemia
     Dosage: 105 MILLIGRAM, QD
     Route: 048
     Dates: start: 20200121
  61. OFEV [Concomitant]
     Active Substance: NINTEDANIB
     Indication: Interstitial lung disease
     Dosage: 75 MILLIGRAM, Q12H
     Route: 048
     Dates: start: 20200403, end: 20221207
  62. OFEV [Concomitant]
     Active Substance: NINTEDANIB
     Dosage: 150 MILLIGRAM, Q12H
     Route: 048
  63. RISEDRONATE SODIUM [Concomitant]
     Active Substance: RISEDRONATE SODIUM
     Indication: Osteoporosis
     Dosage: 17.5 MILLIGRAM, QD
     Route: 048
     Dates: end: 20201205
  64. BUDESONIDE [Concomitant]
     Active Substance: BUDESONIDE
     Indication: Colitis ulcerative
     Dosage: 2 DOSAGE FORM, Q12H
     Route: 054
     Dates: start: 20191129, end: 20200124
  65. BUDESONIDE [Concomitant]
     Active Substance: BUDESONIDE
     Dosage: 1 DOSAGE FORM, Q12H
     Route: 054
     Dates: start: 20220819
  66. PENTASA [Concomitant]
     Active Substance: MESALAMINE
     Indication: Colitis ulcerative
     Dosage: UNK
     Route: 065
     Dates: start: 20191004, end: 20191006
  67. COMIRNATY [Concomitant]
     Active Substance: TOZINAMERAN
     Indication: Antiviral prophylaxis
     Dosage: UNK
     Route: 030
     Dates: start: 20210708, end: 20210708
  68. COMIRNATY [Concomitant]
     Active Substance: TOZINAMERAN
     Dosage: UNK
     Route: 030
     Dates: start: 20210729, end: 20210729
  69. COMIRNATY [Concomitant]
     Active Substance: TOZINAMERAN
     Dosage: UNK
     Route: 030
     Dates: start: 20220302, end: 20220302
  70. COMIRNATY [Concomitant]
     Active Substance: TOZINAMERAN
     Dosage: UNK
     Route: 030
     Dates: start: 20221226, end: 20221226
  71. INFLUENZA VIRUS VACCINE [Concomitant]
     Active Substance: INFLUENZA VIRUS VACCINE
     Indication: Antiviral prophylaxis
     Dosage: UNK
     Route: 065
     Dates: start: 20211201, end: 20211201
  72. PETROLATUM [Concomitant]
     Active Substance: PETROLATUM
     Indication: Eczema asteatotic
     Dosage: UNK
     Route: 065
     Dates: start: 20191211, end: 20200229
  73. PETROLATUM [Concomitant]
     Active Substance: PETROLATUM
     Dosage: UNK
     Route: 065
     Dates: start: 20191210, end: 20200614
  74. GLYCOSAMINOGLYCANS [Concomitant]
     Active Substance: GLYCOSAMINOGLYCANS
     Indication: Eczema asteatotic
     Dosage: UNK
     Route: 065
     Dates: start: 20191211, end: 20200229
  75. Prostandin [Concomitant]
     Dosage: UNK
     Route: 065
     Dates: start: 20191211, end: 20200229
  76. Prostandin [Concomitant]
     Dosage: UNK
     Dates: start: 20191210, end: 20210614
  77. ACETAMINOPHEN [Concomitant]
     Active Substance: ACETAMINOPHEN
     Indication: Pyrexia
     Dosage: UNK
     Route: 048
     Dates: start: 20210729, end: 20210731
  78. Rinderon [Concomitant]
     Dosage: UNK
     Route: 065
     Dates: start: 20210908, end: 20210928
  79. KEFLEX [Concomitant]
     Active Substance: CEPHALEXIN
     Dosage: UNK
     Route: 048
     Dates: start: 20210908, end: 20210911
  80. CALONAL [Concomitant]
     Active Substance: ACETAMINOPHEN
     Indication: Pharyngitis
     Dosage: UNK
     Route: 048
     Dates: start: 20220707, end: 20220710
  81. TRANEXAMIC ACID [Concomitant]
     Active Substance: TRANEXAMIC ACID
     Indication: Pharyngitis
     Dosage: UNK
     Route: 048
     Dates: start: 20220707, end: 20220710
  82. SODIUM GUALENATE MONOHYDRATE [Concomitant]
     Active Substance: SODIUM GUALENATE MONOHYDRATE
     Indication: Pharyngitis
     Dosage: UNK
     Route: 048
     Dates: start: 20220707, end: 20220710

REACTIONS (2)
  - Pneumothorax [Recovered/Resolved]
  - Hypertension [Not Recovered/Not Resolved]

NARRATIVE: CASE EVENT DATE: 20221207
